FAERS Safety Report 8762678 (Version 1)
Quarter: 2012Q4

REPORT INFORMATION
  Report Type: 
  Country: FR (occurrence: FR)
  Receive Date: 20120831
  Receipt Date: 20120831
  Transmission Date: 20130627
  Serious: Yes (Hospitalization, Disabling)
  Sender: FDA-Public Use
  Company Number: FR-B.I. PHARMACEUTICALS,INC./RIDGEFIELD-2012-FF-00965FF

PATIENT
  Age: 73 Year
  Sex: Female

DRUGS (4)
  1. PRADAXA [Suspect]
     Indication: ATRIAL FIBRILLATION
     Dosage: 220 mg
     Route: 048
     Dates: start: 2012, end: 201207
  2. CORDARONE [Concomitant]
  3. NIDREL [Concomitant]
  4. LEVOTHYROX [Concomitant]

REACTIONS (4)
  - Coma [Unknown]
  - Aneurysm ruptured [Not Recovered/Not Resolved]
  - Meningorrhagia [Not Recovered/Not Resolved]
  - Intracranial haematoma [Not Recovered/Not Resolved]
